FAERS Safety Report 4784686-8 (Version None)
Quarter: 2005Q3

REPORT INFORMATION
  Report Type: 
  Country: None (occurrence: None)
  Receive Date: 20050929
  Receipt Date: 20050929
  Transmission Date: 20060218
  Serious: Yes (Life-Threatening, Hospitalization)
  Sender: FDA-Public Use
  Company Number: None

PATIENT
  Age: 44 Year
  Sex: Female
  Weight: 67.1324 kg

DRUGS (3)
  1. ORTHO EVRA [Suspect]
     Indication: PULMONARY EMBOLISM
     Dosage: 1 Q WEEK X 3 WEEKS 1 WEEK OFF
     Dates: start: 20031203, end: 20040704
  2. MAXALT [Concomitant]
  3. NASACORT [Concomitant]

REACTIONS (2)
  - FIBRIN D DIMER INCREASED [None]
  - PULMONARY EMBOLISM [None]
